FAERS Safety Report 5065244-7 (Version None)
Quarter: 2006Q3

REPORT INFORMATION
  Report Type: 
  Country: None (occurrence: None)
  Receive Date: 20060707
  Receipt Date: 20060502
  Transmission Date: 20061208
  Serious: Yes (Hospitalization)
  Sender: FDA-Public Use
  Company Number: SUS1-2006-00498

PATIENT
  Age: 39 Year
  Sex: Female

DRUGS (1)
  1. PENTASA [Suspect]
     Indication: COLITIS COLLAGENOUS
     Dosage: 2 G DAILY, ORAL
     Route: 048
     Dates: start: 20060301, end: 20060301

REACTIONS (2)
  - DIARRHOEA [None]
  - PANCREATITIS [None]
